FAERS Safety Report 6345699-8 (Version None)
Quarter: 2009Q3

REPORT INFORMATION
  Report Type: 
  Country: None (occurrence: None)
  Receive Date: 20090909
  Receipt Date: 20090219
  Transmission Date: 20100115
  Serious: No
  Sender: FDA-Public Use
  Company Number: A0769525A

PATIENT
  Age: 50 Year
  Sex: Female

DRUGS (2)
  1. ALBENZA [Suspect]
     Indication: DRUG USE FOR UNKNOWN INDICATION
     Dosage: 400MG TWICE PER DAY
     Route: 048
     Dates: start: 20090215
  2. PAIN MEDICATION [Concomitant]

REACTIONS (2)
  - CHILLS [None]
  - CHROMATURIA [None]
